FAERS Safety Report 10257520 (Version 1)
Quarter: 2014Q2

REPORT INFORMATION
  Report Type: Spontaneous
  Country: GB (occurrence: GB)
  Receive Date: 20140625
  Receipt Date: 20140625
  Transmission Date: 20141212
  Serious: Yes (Hospitalization, Disabling)
  Sender: FDA-Public Use
  Company Number: PHHY2014GB077723

PATIENT
  Age: 81 Year
  Sex: Male
  Weight: 67 kg

DRUGS (8)
  1. STALEVO [Suspect]
     Indication: PARKINSON^S DISEASE
     Dosage: 450 MG FIVE TIMES A DAY
     Route: 048
     Dates: start: 201302
  2. STALEVO [Suspect]
     Dosage: UNK, GRADUALLY REDUCED
     Route: 048
     Dates: end: 20140523
  3. DOCUSATE [Concomitant]
     Dosage: 100 MG TWICE DAILY
  4. LANSOPRAZOLE [Concomitant]
     Dosage: 30 MG TWICE DAILY
  5. LAXIDO [Concomitant]
     Dosage: 1 DF TWICE DAILY
  6. PARACETAMOL [Concomitant]
     Dosage: 01 G FOUR TIMES A DAY
  7. ROTIGOTINE [Concomitant]
     Dosage: 02 MG ONCE DAILY
  8. TAMSULOSIN [Concomitant]
     Dosage: 400 MCG ONCE DAILY

REACTIONS (2)
  - Haemolytic anaemia [Recovering/Resolving]
  - Weight decreased [Unknown]
